FAERS Safety Report 5946061-X (Version None)
Quarter: 2008Q4

REPORT INFORMATION
  Report Type: 
  Country: None (occurrence: None)
  Receive Date: 20081106
  Receipt Date: 20081022
  Transmission Date: 20090506
  Serious: Yes (Hospitalization, Disabling)
  Sender: FDA-Public Use
  Company Number: 2008S1019066

PATIENT
  Age: 65 Year
  Sex: Female

DRUGS (2)
  1. SIMVASTATIN [Suspect]
     Dosage: 40 MG; DAILY
  2. FLUCONAZOLE [Suspect]
     Indication: CANDIDIASIS
     Dosage: 800 MG;DAILY

REACTIONS (1)
  - RHABDOMYOLYSIS [None]
